FAERS Safety Report 7456203-5 (Version None)
Quarter: 2011Q2

REPORT INFORMATION
  Report Type: 
  Country: None (occurrence: None)
  Receive Date: 20110503
  Receipt Date: 20110420
  Transmission Date: 20111010
  Serious: Yes (Other)
  Sender: FDA-Public Use
  Company Number: JP-AMGEN-JPNSP2011017897

PATIENT
  Age: 30 Year
  Sex: Female
  Weight: 47 kg

DRUGS (6)
  1. CLOMID [Concomitant]
     Indication: OVULATION INDUCTION
     Dosage: UNK
  2. RESTAMIN [Concomitant]
     Indication: RHEUMATOID ARTHRITIS
     Dosage: UNK
     Dates: end: 20110213
  3. ENBREL [Suspect]
     Dosage: 25 MG, ONCE
     Route: 058
     Dates: start: 20110323, end: 20110323
  4. CELECOXIB [Concomitant]
     Indication: RHEUMATOID ARTHRITIS
     Dosage: UNK
     Dates: end: 20110213
  5. ENBREL [Suspect]
     Indication: RHEUMATOID ARTHRITIS
     Dosage: UNK
     Route: 058
     Dates: end: 20110213
  6. PROGRAF [Concomitant]
     Indication: RHEUMATOID ARTHRITIS
     Dosage: UNK
     Dates: end: 20110213

REACTIONS (2)
  - RHEUMATOID ARTHRITIS [None]
  - ABORTION SPONTANEOUS [None]
